FAERS Safety Report 5789170-0 (Version None)
Quarter: 2008Q2

REPORT INFORMATION
  Report Type: 
  Country: None (occurrence: None)
  Receive Date: 20080626
  Receipt Date: 20071108
  Transmission Date: 20081010
  Serious: No
  Sender: FDA-Public Use
  Company Number: US-ASTRAZENECA-2007UW26021

PATIENT
  Age: 69 Year
  Sex: Female
  Weight: 70.3 kg

DRUGS (8)
  1. PULMICORT RESPULES [Suspect]
     Indication: ASTHMA
     Dosage: 0.5 MG/2 ML ONCE A DAY FOR A FEW DAYS
     Route: 055
  2. FASLODEX [Concomitant]
  3. ALBUTEROL [Concomitant]
  4. SINGULAIR [Concomitant]
  5. ZOMETA [Concomitant]
  6. PREDNISONE [Concomitant]
  7. FLOVENT [Concomitant]
  8. PSEUDOPHED [Concomitant]

REACTIONS (1)
  - PARAESTHESIA [None]
